FAERS Safety Report 10190467 (Version 1)
Quarter: 2014Q2

REPORT INFORMATION
  Report Type: Spontaneous
  Country: US (occurrence: US)
  Receive Date: 20140522
  Receipt Date: 20140522
  Transmission Date: 20141212
  Serious: Yes (Other)
  Sender: FDA-Public Use
  Company Number: US-SANOFI-AVENTIS-2013SA068578

PATIENT
  Sex: Female

DRUGS (1)
  1. ELOXATIN [Suspect]
     Route: 065

REACTIONS (3)
  - Anaphylactic reaction [Unknown]
  - Dyspnoea [Unknown]
  - Back pain [Unknown]
